FAERS Safety Report 18087781 (Version 1)
Quarter: 2020Q3

REPORT INFORMATION
  Report Type: Spontaneous
  Country: FR (occurrence: FR)
  Receive Date: 20200729
  Receipt Date: 20200729
  Transmission Date: 20201103
  Serious: Yes (Hospitalization)
  Sender: FDA-Public Use
  Company Number: FR-PFIZER INC-2020284778

PATIENT
  Age: 71 Year
  Sex: Female
  Weight: 103 kg

DRUGS (20)
  1. PANTOPRAZOLE SODIUM. [Concomitant]
     Active Substance: PANTOPRAZOLE SODIUM
  2. KALEORID LP [Concomitant]
     Active Substance: POTASSIUM CHLORIDE
  3. PAROXETINE ARROW [Concomitant]
     Active Substance: PAROXETINE
  4. OXYNORMORO [Concomitant]
     Active Substance: OXYCODONE HYDROCHLORIDE
  5. AMLODIPINE [Concomitant]
     Active Substance: AMLODIPINE BESYLATE
  6. ALLOPURINOL ARROW [Concomitant]
     Active Substance: ALLOPURINOL
  7. PREGABALINE SANDOZ [Concomitant]
  8. OXYCODONE MYLAN [Concomitant]
     Active Substance: OXYCODONE
  9. CELECTOL [Concomitant]
     Active Substance: CELIPROLOL HYDROCHLORIDE
  10. CANDESARTAN/HYDROCHLOROTHIAZIDE ARROW [Concomitant]
  11. ALPRAZOLAM ARROW [Concomitant]
     Active Substance: ALPRAZOLAM
  12. PRIMPERAN [Concomitant]
     Active Substance: METOCLOPRAMIDE HYDROCHLORIDE
  13. LEVOTHYROX [Concomitant]
     Active Substance: LEVOTHYROXINE
  14. SPASFON [PHLOROGLUCINOL;TRIMETHYLPHLOROGLUCINOL] [Concomitant]
     Active Substance: PHLOROGLUCINOL\1,3,5-TRIMETHOXYBENZENE
  15. NEFOPAM MYLAN [Concomitant]
     Active Substance: NEFOPAM
     Dosage: UNK
  16. DEXAMETHASONE MYLAN [Concomitant]
     Active Substance: DEXAMETHASONE
  17. BACTRIM [Concomitant]
     Active Substance: SULFAMETHOXAZOLE\TRIMETHOPRIM
  18. ARACYTINE [Suspect]
     Active Substance: CYTARABINE
     Indication: ACUTE MYELOID LEUKAEMIA
     Dosage: 40 MG, DAILY
     Route: 058
     Dates: start: 20180705, end: 20180714
  19. PIPERACILLIN AND TAZOBACTAM [Concomitant]
     Active Substance: PIPERACILLIN SODIUM\TAZOBACTAM SODIUM
  20. HYDREA [Concomitant]
     Active Substance: HYDROXYUREA

REACTIONS (3)
  - Urinary tract infection [Recovered/Resolved]
  - Pancytopenia [Recovered/Resolved]
  - Lung disorder [Recovered/Resolved]

NARRATIVE: CASE EVENT DATE: 201807
